FAERS Safety Report 14220652 (Version 2)
Quarter: 2017Q4

REPORT INFORMATION
  Report Type: Spontaneous
  Country: JP (occurrence: JP)
  Receive Date: 20171124
  Receipt Date: 20171130
  Transmission Date: 20180321
  Serious: No
  Sender: FDA-Public Use
  Company Number: JP-SA-2017SA228317

PATIENT
  Sex: Male

DRUGS (4)
  1. LOTRIGA [Concomitant]
     Active Substance: OMEGA-3-ACID ETHYL ESTERS
     Route: 065
  2. LEVOCETIRIZINE [Suspect]
     Active Substance: LEVOCETIRIZINE
     Indication: PAIN
     Dosage: DAILY DOSE SELETED AS UNK AS FRE IS AS NEEDED
     Route: 048
  3. LEVOCETIRIZINE [Suspect]
     Active Substance: LEVOCETIRIZINE
     Indication: OFF LABEL USE
     Dosage: DAILY DOSE SELETED AS UNK AS FRE IS AS NEEDED
     Route: 048
  4. PYRIDOXAL PHOSPHATE/HYDROXOCOBALAMIN ACETATE/FURSULTIAMINE [Concomitant]
     Route: 065

REACTIONS (2)
  - Off label use [Unknown]
  - No adverse event [Unknown]
